FAERS Safety Report 5006679-8 (Version None)
Quarter: 2006Q2

REPORT INFORMATION
  Report Type: 
  Country: None (occurrence: None)
  Receive Date: 20060519
  Receipt Date: 20051228
  Transmission Date: 20061013
  Serious: Yes (Other)
  Sender: FDA-Public Use
  Company Number: JP-BRISTOL-MYERS SQUIBB COMPANY-13260591

PATIENT
  Age: 67 Year
  Sex: Male

DRUGS (6)
  1. BRIPLATIN [Suspect]
     Indication: HYPOPHARYNGEAL CANCER
     Route: 041
     Dates: start: 20001006, end: 20001006
  2. FLUOROURACIL [Suspect]
     Indication: HYPOPHARYNGEAL CANCER
     Route: 013
     Dates: start: 20001007, end: 20001017
  3. TAXOTERE [Suspect]
     Indication: HYPOPHARYNGEAL CANCER
     Route: 041
     Dates: start: 20001012, end: 20001012
  4. FOSMICIN [Concomitant]
     Route: 041
     Dates: start: 20000901, end: 20001006
  5. MIRACLID [Concomitant]
     Route: 041
     Dates: start: 20000901, end: 20001006
  6. SOLU-CORTEF [Concomitant]
     Indication: PREMEDICATION
     Route: 013
     Dates: start: 20000907, end: 20001012

REACTIONS (1)
  - LARYNGOPHARYNGITIS [None]
